FAERS Safety Report 18073833 (Version 1)
Quarter: 2020Q3

REPORT INFORMATION
  Report Type: Report from Study
  Country: CA (occurrence: CA)
  Receive Date: 20200727
  Receipt Date: 20200727
  Transmission Date: 20201103
  Serious: Yes (Other)
  Sender: FDA-Public Use
  Company Number: CA-JNJFOC-20200725733

PATIENT
  Age: 79 Year
  Sex: Male

DRUGS (2)
  1. STELARA [Suspect]
     Active Substance: USTEKINUMAB
     Indication: PSORIASIS
     Route: 058
  2. STELARA [Suspect]
     Active Substance: USTEKINUMAB

REACTIONS (6)
  - Loss of consciousness [Unknown]
  - Apathy [Unknown]
  - Drug ineffective [Unknown]
  - Psoriasis [Unknown]
  - Hydrocephalus [Unknown]
  - Depression [Unknown]
